FAERS Safety Report 18377687 (Version 1)
Quarter: 2020Q4

REPORT INFORMATION
  Report Type: Spontaneous
  Country: CA (occurrence: CA)
  Receive Date: 20201013
  Receipt Date: 20201013
  Transmission Date: 20210114
  Serious: Yes (Other)
  Sender: FDA-Public Use
  Company Number: CA-PFIZER INC-2020391055

PATIENT
  Age: 64 Year
  Sex: Female

DRUGS (3)
  1. METHOTREXATE SODIUM. [Suspect]
     Active Substance: METHOTREXATE SODIUM
     Dosage: 20 MG, WEEKLY
     Route: 058
     Dates: start: 201612, end: 201801
  2. HUMIRA [Concomitant]
     Active Substance: ADALIMUMAB
     Dosage: 40 MG, EVERY (Q) 2 WEEKS
     Route: 058
     Dates: start: 201912
  3. METHOTREXATE SODIUM. [Suspect]
     Active Substance: METHOTREXATE SODIUM
     Dosage: 20 MG, EVERY 2 WEEKS
     Route: 058
     Dates: start: 202005

REACTIONS (9)
  - Therapeutic product effect incomplete [Unknown]
  - Product use issue [Unknown]
  - Synovitis [Unknown]
  - C-reactive protein increased [Unknown]
  - Gastrooesophageal reflux disease [Recovered/Resolved]
  - Off label use [Unknown]
  - Hernia [Recovered/Resolved]
  - Impaired quality of life [Unknown]
  - Gastric disorder [Unknown]

NARRATIVE: CASE EVENT DATE: 201612
